FAERS Safety Report 7724432-9 (Version None)
Quarter: 2011Q3

REPORT INFORMATION
  Report Type: 
  Country: None (occurrence: None)
  Receive Date: 20110829
  Receipt Date: 20110824
  Transmission Date: 20111222
  Serious: Yes (Other)
  Sender: FDA-Public Use
  Company Number: US-001885

PATIENT
  Sex: Female
  Weight: 91 kg

DRUGS (2)
  1. KUVAN [Suspect]
     Dosage: 900 MG QD, ORAL; (1800 MG QD ORAL) (900 MG QD ORAL)
     Route: 048
     Dates: start: 20081001
  2. KUVAN [Suspect]
     Dosage: 900 MG QD, ORAL; (1800 MG QD ORAL) (900 MG QD ORAL)
     Route: 048
     Dates: start: 20110629

REACTIONS (8)
  - STAPHYLOCOCCAL INFECTION [None]
  - HAEMATOCHEZIA [None]
  - ABDOMINAL PAIN UPPER [None]
  - DIZZINESS [None]
  - DISORIENTATION [None]
  - MELAENA [None]
  - FATIGUE [None]
  - SKIN INFECTION [None]
